FAERS Safety Report 9156854 (Version 1)
Quarter: 2013Q1

REPORT INFORMATION
  Report Type: Spontaneous
  Country: US (occurrence: US)
  Receive Date: 20130312
  Receipt Date: 20130312
  Transmission Date: 20140127
  Serious: Yes (Hospitalization)
  Sender: FDA-Public Use
  Company Number: US-BAYER-2013-028360

PATIENT
  Age: 47 Year
  Sex: Female
  Weight: 88.44 kg

DRUGS (12)
  1. YAZ [Suspect]
     Indication: MENORRHAGIA
     Dosage: 3 MG-0.02 MG, ORALLY, 1 TAB, ONCE A DAY.
  2. OXYCODONE/APAP [Concomitant]
     Indication: BACK PAIN
     Dosage: 5-325 MG, EVERY 6 HOURS AS NEEDED
     Dates: start: 20100413
  3. OXYCODONE/APAP [Concomitant]
     Indication: PAIN IN EXTREMITY
     Dosage: UNK
     Route: 048
     Dates: start: 20100523
  4. FROVA [Concomitant]
     Dosage: 2.5 MG, UNK
     Dates: start: 20100430
  5. SYNTHROID [Concomitant]
     Indication: HYPOTHYROIDISM
     Dosage: 50 MCG
     Dates: start: 20100505
  6. SYNTHROID [Concomitant]
     Indication: HYPOTHYROIDISM
     Dosage: UNK
     Dates: start: 20100523
  7. CELEBREX [Concomitant]
     Dosage: 200 MG, TID
     Dates: start: 20100523
  8. DILAUDID [Concomitant]
     Indication: PAIN
     Dosage: 2 MG, UNK
     Route: 041
     Dates: start: 20100523
  9. PHENERGAN [Concomitant]
     Dosage: 25 MG, UNK
     Route: 030
     Dates: start: 20100523
  10. PERCOCET [Concomitant]
     Indication: PAIN
     Dosage: 5/325MG [ONE] Q 4-6 H PRN
     Route: 048
     Dates: start: 20100527
  11. FLEXERIL [Concomitant]
     Indication: MUSCLE SPASMS
     Dosage: 10 MG, Q8 H PRN
     Route: 048
     Dates: start: 20100527
  12. FLEXERIL [Concomitant]
     Indication: MYALGIA

REACTIONS (1)
  - Deep vein thrombosis [Recovered/Resolved]
